FAERS Safety Report 8457005 (Version 3)
Quarter: 2013Q3

REPORT INFORMATION
  Report Type: Report from Study
  Country: CA (occurrence: CA)
  Receive Date: 20120313
  Receipt Date: 20130722
  Transmission Date: 20140515
  Serious: Yes (Other)
  Sender: FDA-Public Use
  Company Number: PHHY2011CA47316

PATIENT
  Age: 26 Year
  Sex: Female
  Weight: 68.27 kg

DRUGS (1)
  1. EXTAVIA [Suspect]
     Indication: CLINICALLY ISOLATED SYNDROME
     Dosage: 8 MIU, QOD
     Route: 058
     Dates: start: 20110504

REACTIONS (7)
  - Optic neuritis [Recovered/Resolved]
  - Vision blurred [Recovered/Resolved]
  - Visual impairment [Recovered/Resolved]
  - Visual field defect [Recovered/Resolved]
  - Exposure during pregnancy [Unknown]
  - Chills [Unknown]
  - Myalgia [Unknown]
